FAERS Safety Report 8765025 (Version 2)
Quarter: 2012Q4

REPORT INFORMATION
  Report Type: 
  Country: US (occurrence: US)
  Receive Date: 20120903
  Receipt Date: 20120919
  Transmission Date: 20130627
  Serious: Yes (Hospitalization)
  Sender: FDA-Public Use
  Company Number: US-BIOGENIDEC-2012BI033104

PATIENT
  Age: 43 Year
  Sex: Male

DRUGS (2)
  1. AVONEX [Suspect]
     Indication: MULTIPLE SCLEROSIS
     Route: 030
     Dates: start: 2001, end: 20020825
  2. RECTAL SUPP WITH AMITRIPTYLINE/LIDOCAINE AND MORPHINE [Concomitant]
     Indication: MYELITIS TRANSVERSE

REACTIONS (10)
  - Altered state of consciousness [Recovered/Resolved]
  - Overdose [Recovered/Resolved]
  - Rhabdomyolysis [Not Recovered/Not Resolved]
  - Neuropathy peripheral [Recovered/Resolved]
  - Renal failure acute [Recovered/Resolved]
  - Supraventricular tachycardia [Recovered/Resolved]
  - Inadequate analgesia [Unknown]
  - Hypotension [Recovered/Resolved]
  - Proctalgia [Unknown]
  - Dizziness postural [Unknown]
